FAERS Safety Report 5193321-9 (Version None)
Quarter: 2006Q4

REPORT INFORMATION
  Report Type: 
  Country: None (occurrence: None)
  Receive Date: 20061228
  Receipt Date: 20060919
  Transmission Date: 20070319
  Serious: No
  Sender: FDA-Public Use
  Company Number: US-GLAXOSMITHKLINE-A0620694A

PATIENT
  Age: 61 Year
  Sex: Male

DRUGS (4)
  1. AVODART [Suspect]
     Dosage: .5MG PER DAY
     Route: 048
     Dates: start: 20051001
  2. LISINOPRIL [Concomitant]
  3. CELEBREX [Concomitant]
  4. CADUET [Concomitant]

REACTIONS (3)
  - DRUG INEFFECTIVE [None]
  - ONYCHOCLASIS [None]
  - SEMEN VOLUME DECREASED [None]
